FAERS Safety Report 7375027 (Version 4)
Quarter: 2013Q2

REPORT INFORMATION
  Report Type: Spontaneous
  Country: US (occurrence: US)
  Receive Date: 20100503
  Receipt Date: 20130513
  Transmission Date: 20140414
  Serious: Yes (Hospitalization, Other)
  Sender: FDA-Public Use
  Company Number: US-ASTRAZENECA-2009SE12044

PATIENT
  Age: 74 Year
  Sex: Female

DRUGS (8)
  1. NEXIUM [Suspect]
     Indication: ULCER
     Route: 048
  2. NEXIUM [Suspect]
     Indication: ABDOMINAL DISCOMFORT
     Route: 048
  3. TOPROL XL [Suspect]
     Route: 048
  4. OXYGEN [Suspect]
     Route: 065
  5. UNSPECIFIED BREATHING MEDICATION [Suspect]
     Route: 065
  6. CLINDAMYCIN [Concomitant]
  7. STEROIDS [Concomitant]
  8. BENADRYL [Concomitant]

REACTIONS (29)
  - Gastric neoplasm [Unknown]
  - Lung infection [Unknown]
  - Dyspnoea [Unknown]
  - Dysphonia [Unknown]
  - Arthritis [Unknown]
  - Lung disorder [Unknown]
  - Dysphonia [Unknown]
  - House dust allergy [Unknown]
  - Gastric disorder [Unknown]
  - Kidney infection [Unknown]
  - Mass [Unknown]
  - Heart rate increased [Unknown]
  - Chronic obstructive pulmonary disease [Unknown]
  - Emphysema [Unknown]
  - Immune system disorder [Unknown]
  - Renal disorder [Unknown]
  - Therapeutic response unexpected [Unknown]
  - Cataract [Unknown]
  - Fatigue [Unknown]
  - Weight increased [Unknown]
  - Visual impairment [Unknown]
  - Burning sensation [Unknown]
  - Asthma [Unknown]
  - Dyspnoea [Unknown]
  - Malaise [Unknown]
  - Dry mouth [Unknown]
  - Oedema peripheral [Unknown]
  - Off label use [Unknown]
  - Off label use [Unknown]
